FAERS Safety Report 9617652 (Version 1)
Quarter: 2013Q4

REPORT INFORMATION
  Report Type: Spontaneous
  Country: FR (occurrence: FR)
  Receive Date: 20131011
  Receipt Date: 20131011
  Transmission Date: 20140711
  Serious: Yes (Hospitalization, Other)
  Sender: FDA-Public Use
  Company Number: FR-ELI_LILLY_AND_COMPANY-FR201310000323

PATIENT
  Age: 53 Year
  Sex: Male

DRUGS (3)
  1. EFIENT [Suspect]
     Indication: MYOCARDIAL INFARCTION
     Dosage: UNK, UNKNOWN
     Route: 048
     Dates: start: 20120621, end: 20120625
  2. PLAVIX [Concomitant]
     Dosage: 75 MG, QD
     Dates: start: 20120626
  3. KARDEGIC [Concomitant]
     Dosage: 160 MG, QD

REACTIONS (7)
  - Renal failure [Recovered/Resolved]
  - Hepatocellular injury [Recovered/Resolved]
  - Toxic skin eruption [Recovered/Resolved]
  - Rhonchi [Recovered/Resolved]
  - Pyrexia [Recovered/Resolved]
  - Drug hypersensitivity [Recovered/Resolved]
  - Urticaria [Recovered/Resolved]
